FAERS Safety Report 11640266 (Version 1)
Quarter: 2015Q4

REPORT INFORMATION
  Report Type: Spontaneous
  Country: US (occurrence: US)
  Receive Date: 20151019
  Receipt Date: 20151019
  Transmission Date: 20160304
  Serious: No
  Sender: FDA-Public Use
  Company Number: US-B.I. PHARMACEUTICALS,INC./RIDGEFIELD-2015-BI-55072BP

PATIENT
  Age: 3 Year
  Sex: Male

DRUGS (1)
  1. ZANTAC [Suspect]
     Active Substance: RANITIDINE HYDROCHLORIDE
     Indication: RETT^S DISORDER
     Dosage: ONE 150 MG TABLET CRUSHED,DILUTED IN 10ML WATER, AND ADMINISTERED 4ML BY FEEDING TUBE FOR A TOTAL DO
     Route: 065
     Dates: start: 2015

REACTIONS (1)
  - Off label use [Not Recovered/Not Resolved]

NARRATIVE: CASE EVENT DATE: 2015
